FAERS Safety Report 8238927 (Version 2)
Quarter: 2013Q1

REPORT INFORMATION
  Report Type: Spontaneous
  Country: US (occurrence: US)
  Receive Date: 20111110
  Receipt Date: 20120718
  Transmission Date: 20140127
  Serious: Yes (Hospitalization, Disabling)
  Sender: FDA-Public Use
  Company Number: None

PATIENT
  Age: 89 Year
  Sex: Female

DRUGS (10)
  1. BRILINTA [Suspect]
     Indication: CORONARY ARTERY DISEASE
  2. BRILINTA [Suspect]
     Indication: CORONARY ARTERIAL STENT INSERTION
  3. ASA [Concomitant]
  4. RAMIPRIL [Concomitant]
  5. JANUVIA [Concomitant]
  6. ZETIA [Concomitant]
  7. PEPCID [Concomitant]
  8. MVI [Concomitant]
  9. METOPROLOL [Concomitant]
  10. CLOPIDOGREL [Concomitant]

REACTIONS (3)
  - Atrioventricular block complete [None]
  - Ventricular arrhythmia [None]
  - Cardio-respiratory arrest [None]
